FAERS Safety Report 19438250 (Version 1)
Quarter: 2021Q2

REPORT INFORMATION
  Report Type: Spontaneous
  Country: US (occurrence: US)
  Receive Date: 20210618
  Receipt Date: 20210618
  Transmission Date: 20210717
  Serious: Yes (Life-Threatening, Other)
  Sender: FDA-Public Use
  Company Number: US-ASTRAZENECA-2021A538878

PATIENT
  Sex: Female
  Weight: 68 kg

DRUGS (3)
  1. BRILINTA [Suspect]
     Active Substance: TICAGRELOR
     Indication: MYOCARDIAL INFARCTION
     Dosage: ONE IN THE MORNING AND ONE AT NIGHT
     Route: 048
  2. CLONIDINE. [Concomitant]
     Active Substance: CLONIDINE
     Indication: LIMB DISCOMFORT
  3. SILDENAFIL. [Suspect]
     Active Substance: SILDENAFIL
     Indication: MYOCARDIAL INFARCTION
     Dosage: 20MG
     Route: 065

REACTIONS (5)
  - Gangrene [Unknown]
  - Inability to afford medication [Unknown]
  - Myocardial infarction [Unknown]
  - Cataract [Unknown]
  - Product label confusion [Unknown]
